FAERS Safety Report 26123919 (Version 1)
Quarter: 2025Q4

REPORT INFORMATION
  Report Type: Spontaneous
  Country: US (occurrence: US)
  Receive Date: 20251205
  Receipt Date: 20251205
  Transmission Date: 20260117
  Serious: No
  Sender: ACCORD
  Company Number: US-Accord-500635

PATIENT
  Sex: Female

DRUGS (1)
  1. LEVOTHYROXINE [Suspect]
     Active Substance: LEVOTHYROXINE
     Indication: Autoimmune thyroiditis
     Dosage: STRENGTH: 112 MCG, ONCE DAILY BY MOUTH IN THE MORNING
     Dates: start: 202404, end: 202410

REACTIONS (8)
  - Insomnia [Unknown]
  - Vertigo [Unknown]
  - Brain fog [Unknown]
  - Anxiety [Unknown]
  - Asthenia [Unknown]
  - Product substitution issue [Unknown]
  - Head discomfort [Unknown]
  - Drug ineffective [Unknown]

NARRATIVE: CASE EVENT DATE: 20240101
